FAERS Safety Report 5055434-1 (Version None)
Quarter: 2006Q3

REPORT INFORMATION
  Report Type: 
  Country: None (occurrence: None)
  Receive Date: 20060714
  Receipt Date: 20060626
  Transmission Date: 20061208
  Serious: Yes (Hospitalization)
  Sender: FDA-Public Use
  Company Number: 2006RR-02847

PATIENT
  Age: 51 Year
  Sex: Male

DRUGS (3)
  1. SIMVASTATINE  RANBAXY 5MG (SIMVASTATIN) TABLET, 5 MG [Suspect]
     Indication: PROPHYLAXIS
     Dosage: 5 MG, QD, ORAL
     Route: 048
  2. BETAXOLOL (BEXTAXOLOL) 20MG [Suspect]
     Indication: PROPHYLAXIS
     Dosage: 20 MG, QD, ORAL
     Route: 048
  3. GILGENCLAMIDE [Concomitant]

REACTIONS (7)
  - BLOOD CREATINE PHOSPHOKINASE INCREASED [None]
  - COUGH [None]
  - DYSPNOEA [None]
  - INTERSTITIAL LUNG DISEASE [None]
  - MYALGIA [None]
  - PLEURAL FIBROSIS [None]
  - PYREXIA [None]
